FAERS Safety Report 8846669 (Version 2)
Quarter: 2013Q3

REPORT INFORMATION
  Report Type: Spontaneous
  Country: GB (occurrence: GB)
  Receive Date: 20121017
  Receipt Date: 20130924
  Transmission Date: 20140515
  Serious: Yes (Life-Threatening, Disabling, Other)
  Sender: FDA-Public Use
  Company Number: GB-PFIZER INC-2012256356

PATIENT
  Age: 46 Year
  Sex: Male
  Weight: 98 kg

DRUGS (3)
  1. VENLAFAXINE HCL [Suspect]
     Indication: DEPRESSION
     Dosage: 225 MG, UNK
     Route: 048
  2. CABERGOLINE [Concomitant]
     Dosage: UNK
  3. CODEINE [Concomitant]
     Dosage: UNK

REACTIONS (6)
  - Pain in extremity [Recovering/Resolving]
  - Gait disturbance [Recovering/Resolving]
  - Dysstasia [Recovering/Resolving]
  - Pain [Unknown]
  - Withdrawal syndrome [Unknown]
  - Depression [Not Recovered/Not Resolved]
